FAERS Safety Report 4556591-3 (Version None)
Quarter: 2005Q1

REPORT INFORMATION
  Report Type: 
  Country: None (occurrence: None)
  Receive Date: 20050118
  Receipt Date: 20050106
  Transmission Date: 20050727
  Serious: Yes (Hospitalization, Other)
  Sender: FDA-Public Use
  Company Number: 2004102138

PATIENT
  Age: 26 Year
  Sex: Female
  Weight: 68.0396 kg

DRUGS (4)
  1. DEPO-PROVERA [Suspect]
     Indication: CONTRACEPTION
     Dosage: 150 MG 9150 MG, EVERY 12 WEEKS, 1ST INJECTION) INTRAMUSCULAR
     Route: 030
     Dates: start: 20010101, end: 20010101
  2. DEPO-PROVERA [Suspect]
     Indication: CONTRACEPTION
     Dosage: 150 MG 9150 MG, EVERY 12 WEEKS, 1ST INJECTION) INTRAMUSCULAR
     Route: 030
     Dates: start: 20041129, end: 20041129
  3. METHYLPREDNISOLONE [Concomitant]
  4. DIPHENHYDRAMINE HCL [Concomitant]

REACTIONS (26)
  - ABDOMINAL DISTENSION [None]
  - ANXIETY [None]
  - ARTHRALGIA [None]
  - BLOOD PRESSURE ABNORMAL [None]
  - BLOOD URINE PRESENT [None]
  - BREAST TENDERNESS [None]
  - CONTUSION [None]
  - DIZZINESS [None]
  - DRUG HYPERSENSITIVITY [None]
  - DYSPNOEA [None]
  - ERYTHEMA [None]
  - FEELING ABNORMAL [None]
  - FEELING HOT [None]
  - HEART RATE INCREASED [None]
  - INJECTION SITE HAEMORRHAGE [None]
  - LIVEDO RETICULARIS [None]
  - NAUSEA [None]
  - OXYGEN SATURATION DECREASED [None]
  - PAIN IN EXTREMITY [None]
  - PARAESTHESIA [None]
  - PYREXIA [None]
  - SENSORY LOSS [None]
  - SWELLING [None]
  - TREMOR [None]
  - VASCULAR INJURY [None]
  - WHITE BLOOD CELLS URINE POSITIVE [None]
